FAERS Safety Report 4919743-6 (Version None)
Quarter: 2006Q1

REPORT INFORMATION
  Report Type: 
  Country: None (occurrence: None)
  Receive Date: 20060221
  Receipt Date: 20060210
  Transmission Date: 20060701
  Serious: Yes (Other)
  Sender: FDA-Public Use
  Company Number: 2006003368

PATIENT
  Age: 67 Year
  Sex: Female
  Weight: 65 kg

DRUGS (8)
  1. NEURONTIN [Suspect]
     Indication: NEURALGIA
     Dosage: 300 MG (100 MG 3 IN 1 D)ORAL
     Route: 048
     Dates: start: 20041202, end: 20051101
  2. AMITRIPTYLINE HYDROCHLORIDE [Suspect]
     Indication: ILL-DEFINED DISORDER
     Dosage: ORAL
     Route: 048
     Dates: start: 20040101, end: 20051001
  3. PROTAGENS (POLYVIDONE) [Concomitant]
  4. LORAZEPAM [Concomitant]
  5. ASCAL (ACETYLSALICYLIC CALCIUM) [Concomitant]
  6. PREMARIN [Concomitant]
  7. CELEBREX [Concomitant]
  8. CARBAMAZEPINE [Concomitant]

REACTIONS (10)
  - CONTUSION [None]
  - DIZZINESS [None]
  - DRY MOUTH [None]
  - ERYTHEMA MULTIFORME [None]
  - FOAMING AT MOUTH [None]
  - PHARMACEUTICAL PRODUCT COMPLAINT [None]
  - POLYURIA [None]
  - SLEEP DISORDER [None]
  - VISUAL ACUITY REDUCED [None]
  - WEIGHT DECREASED [None]
